FAERS Safety Report 9091877 (Version 3)
Quarter: 2013Q1

REPORT INFORMATION
  Report Type: Report from Study
  Country: DE (occurrence: DE)
  Receive Date: 20130201
  Receipt Date: 20130321
  Transmission Date: 20140127
  Serious: Yes (Hospitalization, Disabling, Other)
  Sender: FDA-Public Use
  Company Number: DE-BAXTER-2013BAX001322

PATIENT
  Age: 62 Year
  Sex: Male
  Weight: 80 kg

DRUGS (7)
  1. KIOVIG [Suspect]
     Indication: MULTIFOCAL MOTOR NEUROPATHY
     Dosage: 2 G/KG
     Route: 042
     Dates: start: 20121108, end: 20121108
  2. KIOVIG [Suspect]
     Indication: MULTIFOCAL MOTOR NEUROPATHY
     Dosage: 2 G/KG
     Route: 042
     Dates: start: 20130113, end: 20130113
  3. MAGNESIUM VERLA [Concomitant]
     Indication: PRODUCT USED FOR UNKNOWN INDICATION
  4. PANTOPRAZOL [Concomitant]
     Indication: PRODUCT USED FOR UNKNOWN INDICATION
  5. BELOK ZOK MITE [Concomitant]
     Indication: PRODUCT USED FOR UNKNOWN INDICATION
  6. LIMPTAR [Concomitant]
     Indication: PRODUCT USED FOR UNKNOWN INDICATION
  7. TOLPERISON [Concomitant]
     Indication: PRODUCT USED FOR UNKNOWN INDICATION

REACTIONS (5)
  - Fall [Recovered/Resolved]
  - Anaphylactic reaction [Recovered/Resolved]
  - Cervical vertebral fracture [Recovered/Resolved]
  - Lung disorder [Recovered/Resolved]
  - Hypersensitivity [Recovered/Resolved]
